FAERS Safety Report 4447805-9 (Version None)
Quarter: 2004Q3

REPORT INFORMATION
  Report Type: 
  Country: None (occurrence: None)
  Receive Date: 20040817
  Receipt Date: 20040316
  Transmission Date: 20050211
  Serious: Yes (Hospitalization)
  Sender: FDA-Public Use
  Company Number: MEDI-0001569 (0)

PATIENT
  Age: 13 Month
  Sex: Female

DRUGS (2)
  1. SYNAGIS [Suspect]
     Indication: ANTIVIRAL PROPHYLAXIS
     Dosage: 109 MG, 1 IN 30 D, INTRAMUSCULAR; 101 MG, 1 IN 30 D, INTRAMUSCULAR
     Route: 030
     Dates: start: 20040112, end: 20040209
  2. SYNAGIS [Suspect]
     Indication: ANTIVIRAL PROPHYLAXIS
     Dosage: 109 MG, 1 IN 30 D, INTRAMUSCULAR; 101 MG, 1 IN 30 D, INTRAMUSCULAR
     Route: 030
     Dates: start: 20040112

REACTIONS (2)
  - RESPIRATORY SYNCYTIAL VIRUS INFECTION [None]
  - WHEEZING [None]
